FAERS Safety Report 8978504 (Version 1)
Quarter: 2012Q4

REPORT INFORMATION
  Report Type: 
  Country: GB (occurrence: GB)
  Receive Date: 20121221
  Receipt Date: 20121221
  Transmission Date: 20130627
  Serious: Yes (Disabling)
  Sender: FDA-Public Use
  Company Number: GB-JNJFOC-20121208147

PATIENT
  Age: 75 Year
  Sex: Male
  Weight: 73 kg

DRUGS (5)
  1. RIVAROXABAN [Suspect]
     Indication: PRODUCT USED FOR UNKNOWN INDICATION
     Route: 048
  2. PARACETAMOL [Concomitant]
     Route: 065
     Dates: start: 20120806, end: 20120831
  3. E45 [Concomitant]
     Route: 065
     Dates: start: 20121024, end: 20121103
  4. RAMIPRIL [Concomitant]
     Route: 065
     Dates: start: 20120806
  5. HYDROXOCOBALAMIN [Concomitant]
     Route: 065
     Dates: start: 20121114

REACTIONS (2)
  - Rash pruritic [Recovering/Resolving]
  - Rash [Recovering/Resolving]
